FAERS Safety Report 21734329 (Version 1)
Quarter: 2022Q4

REPORT INFORMATION
  Report Type: Spontaneous
  Country: US (occurrence: US)
  Receive Date: 20221215
  Receipt Date: 20221215
  Transmission Date: 20230112
  Serious: No
  Sender: FDA-Public Use
  Company Number: US-ORGANON-O2212USA000501

PATIENT
  Sex: Female

DRUGS (1)
  1. ASMANEX HFA [Suspect]
     Active Substance: MOMETASONE FUROATE
     Indication: Asthma
     Dosage: 1 PUFF TWICE A DAY

REACTIONS (6)
  - Chest discomfort [Unknown]
  - Therapeutic product effect decreased [Unknown]
  - Device malfunction [Unknown]
  - Incorrect dose administered [Unknown]
  - Poor quality device used [Unknown]
  - Wrong technique in product usage process [Unknown]
